FAERS Safety Report 13292134 (Version 1)
Quarter: 2017Q1

REPORT INFORMATION
  Report Type: Spontaneous
  Country: US (occurrence: US)
  Receive Date: 20170303
  Receipt Date: 20170303
  Transmission Date: 20170428
  Serious: Yes (Other)
  Sender: FDA-Public Use
  Company Number: None

PATIENT
  Age: 38 Year
  Sex: Female
  Weight: 63 kg

DRUGS (1)
  1. LITHIUM CARBONATE. [Suspect]
     Active Substance: LITHIUM CARBONATE
     Dosage: ?          QUANTITY:1 CAPSULE(S);?
     Route: 048
     Dates: start: 20170301, end: 20170301

REACTIONS (9)
  - Rash macular [None]
  - Peripheral swelling [None]
  - Cheilitis [None]
  - Burning sensation [None]
  - Swollen tongue [None]
  - Pain in extremity [None]
  - Oral discomfort [None]
  - Pharyngeal oedema [None]
  - Lip swelling [None]

NARRATIVE: CASE EVENT DATE: 20170303
